FAERS Safety Report 6872041-6 (Version None)
Quarter: 2010Q3

REPORT INFORMATION
  Report Type: 
  Country: None (occurrence: None)
  Receive Date: 20100723
  Receipt Date: 20100712
  Transmission Date: 20110219
  Serious: Yes (Disabling, Other)
  Sender: FDA-Public Use
  Company Number: CA-PFIZER INC-2010086634

PATIENT
  Sex: Male

DRUGS (1)
  1. CHAMPIX [Suspect]
     Indication: SMOKING CESSATION THERAPY
     Dosage: UNK
     Dates: start: 20080101, end: 20080201

REACTIONS (8)
  - ABNORMAL BEHAVIOUR [None]
  - ACTIVITIES OF DAILY LIVING IMPAIRED [None]
  - AMNESIA [None]
  - ANGER [None]
  - DEPRESSION [None]
  - FATIGUE [None]
  - HALLUCINATION [None]
  - SUICIDAL IDEATION [None]
